FAERS Safety Report 17638450 (Version 1)
Quarter: 2020Q2

REPORT INFORMATION
  Report Type: Spontaneous
  Country: KR (occurrence: KR)
  Receive Date: 20200407
  Receipt Date: 20200407
  Transmission Date: 20200713
  Serious: Yes (Other)
  Sender: FDA-Public Use
  Company Number: KR-ALLERGAN-2014540US

PATIENT
  Sex: Male

DRUGS (4)
  1. NALOXONE W/OXYCODONE [Suspect]
     Active Substance: NALOXONE HYDROCHLORIDE\OXYCODONE HYDROCHLORIDE
     Indication: TRIGEMINAL NEURALGIA
     Dosage: 10 MG OF NALOXONE AND 20 MG OF OXYCODONE DAILY
     Route: 065
  2. MILNACIPRAN - BP [Suspect]
     Active Substance: MILNACIPRAN
     Indication: TRIGEMINAL NEURALGIA
     Dosage: 25 MG, QD
     Route: 065
  3. OXCARBAZEPINE. [Suspect]
     Active Substance: OXCARBAZEPINE
     Indication: TRIGEMINAL NEURALGIA
     Dosage: 600 MG, QD
     Route: 065
  4. TOPIRAMATE. [Suspect]
     Active Substance: TOPIRAMATE
     Indication: TRIGEMINAL NEURALGIA
     Dosage: 75 MG DAILY FURTHER INCREASED TO 100 MG DAILY
     Route: 065

REACTIONS (9)
  - Product use in unapproved indication [Unknown]
  - Muscular weakness [Unknown]
  - Back pain [Unknown]
  - Off label use [Unknown]
  - Hyponatraemia [Recovered/Resolved]
  - Spinal stenosis [Unknown]
  - Gait disturbance [Recovering/Resolving]
  - Fall [Recovered/Resolved]
  - Pain in extremity [Unknown]
